FAERS Safety Report 10192908 (Version 1)
Quarter: 2014Q2

REPORT INFORMATION
  Report Type: Spontaneous
  Country: CA (occurrence: CA)
  Receive Date: 20140523
  Receipt Date: 20140523
  Transmission Date: 20141212
  Serious: Yes (Other)
  Sender: FDA-Public Use
  Company Number: CA-009507513-1405CAN008304

PATIENT
  Age: 11 Year
  Sex: 0
  Weight: 39 kg

DRUGS (4)
  1. ZENHALE [Suspect]
     Dosage: 200 MG, BID
     Route: 048
  2. SINGULAIR [Concomitant]
     Route: 065
  3. ADVAIR [Concomitant]
     Route: 065
  4. ALVESCO [Concomitant]
     Route: 065

REACTIONS (1)
  - Blood cortisol decreased [Recovered/Resolved]
